FAERS Safety Report 10230802 (Version 5)
Quarter: 2014Q4

REPORT INFORMATION
  Report Type: Spontaneous
  Country: RU (occurrence: RU)
  Receive Date: 20140611
  Receipt Date: 20141015
  Transmission Date: 20150528
  Serious: Yes (Life-Threatening)
  Sender: FDA-Public Use
  Company Number: RU-TEVA-485994ISR

PATIENT
  Age: 36 Year
  Sex: Female
  Weight: 60 kg

DRUGS (5)
  1. QUAMATEL [Concomitant]
     Indication: PREMEDICATION
     Route: 042
     Dates: start: 20140520, end: 20140521
  2. CISPLATIN TEVA [Suspect]
     Active Substance: CISPLATIN
     Indication: BREAST CANCER
     Dosage: 1MG/ML 100ML
     Route: 042
     Dates: start: 20140520, end: 20140523
  3. EMESET [Concomitant]
     Indication: PREMEDICATION
     Route: 042
     Dates: start: 20140520, end: 20140521
  4. DEXAMETHASONE. [Concomitant]
     Active Substance: DEXAMETHASONE
     Indication: PREMEDICATION
     Route: 042
     Dates: start: 20140520, end: 20140521
  5. TAXOTERE [Concomitant]
     Active Substance: DOCETAXEL
     Indication: CHEMOTHERAPY
     Route: 042
     Dates: start: 20140520, end: 20140520

REACTIONS (7)
  - Loss of consciousness [Recovering/Resolving]
  - Toxicity to various agents [Unknown]
  - Hypoaesthesia [Recovering/Resolving]
  - Acute kidney injury [Recovered/Resolved]
  - Vomiting [Recovered/Resolved]
  - Paraesthesia [Recovering/Resolving]
  - Nausea [Recovered/Resolved]

NARRATIVE: CASE EVENT DATE: 20140521
